FAERS Safety Report 16934749 (Version 1)
Quarter: 2019Q4

REPORT INFORMATION
  Report Type: Spontaneous
  Country: US (occurrence: US)
  Receive Date: 20191018
  Receipt Date: 20191018
  Transmission Date: 20200122
  Serious: No
  Sender: FDA-Public Use
  Company Number: US-BAYER-2019-187103

PATIENT
  Age: 52 Year
  Sex: Female

DRUGS (1)
  1. CLIMARA [Suspect]
     Active Substance: ESTRADIOL
     Indication: HORMONE REPLACEMENT THERAPY
     Dosage: UNK
     Route: 062
     Dates: start: 201909

REACTIONS (4)
  - Product adhesion issue [None]
  - Off label use [None]
  - Product use in unapproved indication [None]
  - Wrong technique in product usage process [None]

NARRATIVE: CASE EVENT DATE: 201909
